FAERS Safety Report 7260297-X (Version None)
Quarter: 2011Q1

REPORT INFORMATION
  Report Type: 
  Country: None (occurrence: None)
  Receive Date: 20110130
  Receipt Date: 20101018
  Transmission Date: 20110831
  Serious: No
  Sender: FDA-Public Use
  Company Number: US-ABBOTT-10P-163-0679425-00

PATIENT
  Sex: Male
  Weight: 108.96 kg

DRUGS (2)
  1. HUMIRA [Suspect]
     Indication: PSORIATIC ARTHROPATHY
     Dosage: TOTAL THERAPY 2 YRS
     Route: 058
     Dates: start: 20080101, end: 20100401
  2. HUMIRA [Suspect]
     Route: 058
     Dates: start: 20100401, end: 20101004

REACTIONS (2)
  - PAIN [None]
  - DRUG INEFFECTIVE [None]
